FAERS Safety Report 8153456-5 (Version None)
Quarter: 2012Q1

REPORT INFORMATION
  Report Type: 
  Country: None (occurrence: None)
  Receive Date: 20120221
  Receipt Date: 20120216
  Transmission Date: 20120608
  Serious: Yes (Death)
  Sender: FDA-Public Use
  Company Number: JP-SANOFI-AVENTIS-2012SA010722

PATIENT
  Age: 55 Year
  Sex: Male

DRUGS (4)
  1. CISPLATIN [Suspect]
     Route: 065
  2. TAXOTERE [Suspect]
     Route: 065
     Dates: start: 20111201, end: 20120101
  3. TS-1 [Suspect]
     Route: 065
  4. PACLITAXEL [Concomitant]

REACTIONS (2)
  - FEBRILE NEUTROPENIA [None]
  - MALIGNANT PERITONEAL NEOPLASM [None]
